FAERS Safety Report 7879881-5 (Version None)
Quarter: 2011Q4

REPORT INFORMATION
  Report Type: 
  Country: None (occurrence: None)
  Receive Date: 20111101
  Receipt Date: 20111025
  Transmission Date: 20120403
  Serious: Yes (Hospitalization)
  Sender: FDA-Public Use
  Company Number: CA-MERCK-1110USA03893

PATIENT
  Sex: Male

DRUGS (2)
  1. JANUVIA [Suspect]
     Route: 048
  2. ZIPRASIDONE HYDROCHLORIDE [Suspect]
     Route: 065

REACTIONS (2)
  - DRUG INTERACTION [None]
  - SEDATION [None]
